FAERS Safety Report 6527810-9 (Version None)
Quarter: 2010Q1

REPORT INFORMATION
  Report Type: 
  Country: None (occurrence: None)
  Receive Date: 20100106
  Receipt Date: 20091231
  Transmission Date: 20100710
  Serious: Yes (Death, Hospitalization)
  Sender: FDA-Public Use
  Company Number: US-ROCHE-654549

PATIENT
  Sex: Female
  Weight: 64.9 kg

DRUGS (3)
  1. CAPECITABINE [Suspect]
     Indication: BREAST CANCER
     Dosage: TEMPORARILY INTERRUPTED
     Route: 048
     Dates: start: 20090710
  2. CAPECITABINE [Suspect]
     Route: 048
     Dates: end: 20090801
  3. CAPECITABINE [Suspect]
     Route: 048
     Dates: start: 20091113, end: 20091223

REACTIONS (2)
  - DEATH [None]
  - PNEUMONIA [None]
